FAERS Safety Report 4535272-6 (Version None)
Quarter: 2004Q4

REPORT INFORMATION
  Report Type: 
  Country: None (occurrence: None)
  Receive Date: 20041222
  Receipt Date: 20041216
  Transmission Date: 20050328
  Serious: Yes (Other)
  Sender: FDA-Public Use
  Company Number: US-BRISTOL-MYERS SQUIBB COMPANY-12797726

PATIENT
  Age: 5 Decade
  Sex: Female
  Weight: 68 kg

DRUGS (6)
  1. ERBITUX [Suspect]
     Indication: RECTAL CANCER METASTATIC
     Dosage: 23RD INFUSION GIVEN ON 15-DEC-04, ADMINISTERED WEEKLY WITH SOME INTERMISSIONS
     Route: 042
     Dates: start: 20040101, end: 20040101
  2. ALOXI [Concomitant]
     Indication: PREMEDICATION
     Route: 042
     Dates: start: 20040101, end: 20040101
  3. BENADRYL [Concomitant]
     Indication: PREMEDICATION
     Route: 042
     Dates: start: 20040101, end: 20040101
  4. PREMARIN [Concomitant]
  5. DILANTIN [Concomitant]
  6. DECADRON [Concomitant]

REACTIONS (4)
  - CONVULSION [None]
  - HEADACHE [None]
  - HYPERTRICHOSIS [None]
  - METASTASES TO CENTRAL NERVOUS SYSTEM [None]
